FAERS Safety Report 23493673 (Version 1)
Quarter: 2024Q1

REPORT INFORMATION
  Report Type: Spontaneous
  Country: US (occurrence: US)
  Receive Date: 20240207
  Receipt Date: 20240207
  Transmission Date: 20240409
  Serious: No
  Sender: FDA-Public Use
  Company Number: US-SA-SAC20240201000593

PATIENT
  Sex: Male
  Weight: 25.4 kg

DRUGS (1)
  1. DUPIXENT [Suspect]
     Active Substance: DUPILUMAB
     Indication: Dermatitis atopic
     Dosage: 300 MG, QM
     Route: 058
     Dates: start: 20221229

REACTIONS (4)
  - Skin discomfort [Unknown]
  - Dermatitis atopic [Unknown]
  - Pain of skin [Unknown]
  - Pruritus [Unknown]
